FAERS Safety Report 13709652 (Version 1)
Quarter: 2017Q3

REPORT INFORMATION
  Report Type: Spontaneous
  Country: FR (occurrence: FR)
  Receive Date: 20170703
  Receipt Date: 20170703
  Transmission Date: 20171127
  Serious: Yes (Hospitalization)
  Sender: FDA-Public Use
  Company Number: FR-ACCORD-052998

PATIENT
  Age: 49 Year
  Sex: Male

DRUGS (6)
  1. OXALIPLATIN HOSPIRA [Suspect]
     Active Substance: OXALIPLATIN
     Indication: T-CELL LYMPHOMA
     Route: 042
     Dates: start: 20161108
  2. GEMCITABINE/GEMCITABINE HYDROCHLORIDE [Suspect]
     Active Substance: GEMCITABINE\GEMCITABINE HYDROCHLORIDE
     Indication: T-CELL LYMPHOMA
     Route: 042
     Dates: start: 20161108
  3. BENDAMUSTINE ACCORD [Suspect]
     Active Substance: BENDAMUSTINE
     Indication: T-CELL LYMPHOMA
     Route: 042
     Dates: start: 20170109
  4. ETOPOSIDE MYLAN [Suspect]
     Active Substance: ETOPOSIDE
     Indication: T-CELL LYMPHOMA
     Route: 042
     Dates: start: 20170222
  5. ROMIDEPSIN [Suspect]
     Active Substance: ROMIDEPSIN
     Indication: T-CELL LYMPHOMA
     Dosage: 4TH LINE OF TREATMENT
     Route: 042
     Dates: start: 20170419
  6. HOLOXAN [Suspect]
     Active Substance: IFOSFAMIDE
     Indication: T-CELL LYMPHOMA
     Route: 042
     Dates: start: 20170222

REACTIONS (5)
  - Acute myeloid leukaemia [Not Recovered/Not Resolved]
  - Off label use [Unknown]
  - Lipase increased [None]
  - Mesenteric vein thrombosis [None]
  - Pancreatitis [None]
